FAERS Safety Report 21479577 (Version 1)
Quarter: 2022Q4

REPORT INFORMATION
  Report Type: Spontaneous
  Country: FR (occurrence: FR)
  Receive Date: 20221019
  Receipt Date: 20221019
  Transmission Date: 20230113
  Serious: Yes (Death, Other)
  Sender: FDA-Public Use
  Company Number: FR-AMGEN-FRASP2022177108

PATIENT

DRUGS (10)
  1. ADALIMUMAB [Suspect]
     Active Substance: ADALIMUMAB
     Indication: Rheumatoid arthritis
     Dosage: UNK
     Route: 065
  2. METHOTREXATE [Concomitant]
     Active Substance: METHOTREXATE
     Dosage: UNK
  3. LEFLUNOMIDE [Concomitant]
     Active Substance: LEFLUNOMIDE
     Dosage: UNK
  4. SULFASALAZINE [Concomitant]
     Active Substance: SULFASALAZINE
     Dosage: UNK
  5. HYDROXYCHLOROQUINE [Concomitant]
     Active Substance: HYDROXYCHLOROQUINE
     Dosage: UNK
  6. ABATACEPT [Concomitant]
     Active Substance: ABATACEPT
     Dosage: UNK
  7. RITUXIMAB [Concomitant]
     Active Substance: RITUXIMAB
     Dosage: UNK
  8. ANAKINRA [Concomitant]
     Active Substance: ANAKINRA
     Dosage: UNK
  9. BARICITINIB [Concomitant]
     Active Substance: BARICITINIB
     Dosage: 4 MILLIGRAM, QD
  10. TOFACITINIB [Concomitant]
     Active Substance: TOFACITINIB
     Dosage: 5 MILLIGRAM, BID

REACTIONS (6)
  - Death [Fatal]
  - Ischaemic stroke [Unknown]
  - Embolism venous [Unknown]
  - Thrombosis [Unknown]
  - Pulmonary embolism [Unknown]
  - Myocardial infarction [Unknown]
